FAERS Safety Report 17846189 (Version 1)
Quarter: 2020Q2

REPORT INFORMATION
  Report Type: Spontaneous
  Country: US (occurrence: US)
  Receive Date: 20200530
  Receipt Date: 20200530
  Transmission Date: 20200714
  Serious: Yes (Hospitalization)
  Sender: FDA-Public Use
  Company Number: None

PATIENT
  Age: 63 Year
  Sex: Male
  Weight: 113 kg

DRUGS (3)
  1. CISPLATIN (119875) [Suspect]
     Active Substance: CISPLATIN
     Dates: end: 20200522
  2. IFOSFAMIDE. [Suspect]
     Active Substance: IFOSFAMIDE
     Dates: end: 20200523
  3. TAXOL [Suspect]
     Active Substance: PACLITAXEL
     Dates: end: 20200422

REACTIONS (8)
  - Urinary tract obstruction [None]
  - Prostatomegaly [None]
  - Bladder outlet obstruction [None]
  - Hydronephrosis [None]
  - Hypomagnesaemia [None]
  - Acute kidney injury [None]
  - Hypokalaemia [None]
  - Blood creatinine increased [None]

NARRATIVE: CASE EVENT DATE: 20200523
